FAERS Safety Report 19596887 (Version 6)
Quarter: 2022Q1

REPORT INFORMATION
  Report Type: Spontaneous
  Country: CA (occurrence: CA)
  Receive Date: 20210723
  Receipt Date: 20220211
  Transmission Date: 20220423
  Serious: Yes (Other)
  Sender: FDA-Public Use
  Company Number: CA-CELLTRION INC.-2020CA027738

PATIENT

DRUGS (10)
  1. INFLECTRA [Suspect]
     Active Substance: INFLIXIMAB-DYYB
     Indication: Colitis ulcerative
     Dosage: 300 MG 0, 2, 6 WEEKS, EVERY 8 WEEKS
     Route: 042
     Dates: start: 20200904
  2. INFLECTRA [Suspect]
     Active Substance: INFLIXIMAB-DYYB
     Dosage: 300 MG 0, 2, 6 WEEKS, EVERY 8 WEEKS
     Route: 042
     Dates: start: 20200904
  3. INFLECTRA [Suspect]
     Active Substance: INFLIXIMAB-DYYB
     Dosage: 300 MG 0, 2, 6 WEEKS, EVERY 8 WEEKS
     Route: 042
     Dates: start: 20210213
  4. INFLECTRA [Suspect]
     Active Substance: INFLIXIMAB-DYYB
     Dosage: 300 MG 0, 2, 6 WEEKS, EVERY 8 WEEKS
     Route: 042
     Dates: start: 20210422
  5. INFLECTRA [Suspect]
     Active Substance: INFLIXIMAB-DYYB
     Dosage: 300 MG 0, 2, 6 WEEKS, EVERY 8 WEEKS
     Route: 042
     Dates: start: 20210619
  6. INFLECTRA [Suspect]
     Active Substance: INFLIXIMAB-DYYB
     Dosage: 300 MG 0, 2, 6 WEEKS, EVERY 8 WEEKS
     Route: 042
     Dates: start: 20210813
  7. INFLECTRA [Suspect]
     Active Substance: INFLIXIMAB-DYYB
     Dosage: 300 MG 0, 2, 6 WEEKS, EVERY 8 WEEKS
     Route: 042
     Dates: start: 20211009
  8. INFLECTRA [Suspect]
     Active Substance: INFLIXIMAB-DYYB
     Dosage: 300 MG 0, 2, 6 WEEKS, EVERY 8 WEEKS
     Route: 042
     Dates: start: 20211204
  9. IMURAN [Concomitant]
     Active Substance: AZATHIOPRINE
     Dosage: 50 MG
     Route: 065
  10. PREDNISONE [Concomitant]
     Active Substance: PREDNISONE
     Dosage: 40MG TAPERING

REACTIONS (5)
  - Condition aggravated [Not Recovered/Not Resolved]
  - Drug specific antibody present [Unknown]
  - Body temperature decreased [Unknown]
  - Nonspecific reaction [Unknown]
  - Inappropriate schedule of product administration [Unknown]

NARRATIVE: CASE EVENT DATE: 20200904
